FAERS Safety Report 7343068-5 (Version None)
Quarter: 2011Q1

REPORT INFORMATION
  Report Type: 
  Country: None (occurrence: None)
  Receive Date: 20110310
  Receipt Date: 20110301
  Transmission Date: 20110831
  Serious: Yes (Other)
  Sender: FDA-Public Use
  Company Number: JP-JNJFOC-20110303006

PATIENT
  Age: 90 Year
  Sex: Female

DRUGS (3)
  1. AMARYL [Concomitant]
     Route: 065
  2. LEVOFLOXACIN [Suspect]
     Indication: CYSTITIS
     Route: 065
  3. BASEN [Concomitant]
     Route: 065

REACTIONS (1)
  - DELIRIUM [None]
